FAERS Safety Report 5427131-1 (Version None)
Quarter: 2007Q3

REPORT INFORMATION
  Report Type: 
  Country: None (occurrence: None)
  Receive Date: 20070824
  Receipt Date: 20070824
  Transmission Date: 20080115
  Serious: No
  Sender: FDA-Public Use
  Company Number: None

PATIENT
  Age: 43 Year
  Sex: Male
  Weight: 63.5036 kg

DRUGS (2)
  1. PRAVASTATIN SODIUM [Suspect]
     Indication: HYPERCHOLESTEROLAEMIA
     Dosage: 20MG ONE TABLET DAILY PO
     Route: 048
     Dates: start: 20070525, end: 20070707
  2. SIMVASTATIN [Suspect]

REACTIONS (1)
  - SUDDEN HEARING LOSS [None]
